FAERS Safety Report 7814249-9 (Version None)
Quarter: 2011Q4

REPORT INFORMATION
  Report Type: 
  Country: None (occurrence: None)
  Receive Date: 20111014
  Receipt Date: 20111004
  Transmission Date: 20120403
  Serious: Yes (Death)
  Sender: FDA-Public Use
  Company Number: AU-SANOFI-AVENTIS-2011SA059989

PATIENT
  Age: 73 Year
  Sex: Male

DRUGS (2)
  1. ARAVA [Suspect]
     Route: 048
     Dates: start: 20010822
  2. PREDNISONE [Concomitant]
     Dates: start: 19960101

REACTIONS (1)
  - DEATH [None]
